FAERS Safety Report 5858483-6 (Version None)
Quarter: 2008Q3

REPORT INFORMATION
  Report Type: 
  Country: None (occurrence: None)
  Receive Date: 20080826
  Receipt Date: 20080814
  Transmission Date: 20090109
  Serious: Yes (Congenital Anomaly, Other)
  Sender: FDA-Public Use
  Company Number: US-PFIZER INC-2008049836

PATIENT
  Sex: Female

DRUGS (4)
  1. ZOLOFT [Suspect]
     Route: 048
  2. PROMETHAZINE [Concomitant]
     Indication: NAUSEA
     Dosage: FREQ:EVERY 6 HOURS AS NEEDED
     Route: 048
     Dates: start: 20050101
  3. ENDOCET [Concomitant]
     Indication: PAIN
     Dosage: FREQ:EVERY 4 HOURS AS NEEDED
     Route: 048
  4. TRIAMCINOLONE [Concomitant]

REACTIONS (11)
  - AORTIC DISORDER [None]
  - CEREBELLAR HYPOPLASIA [None]
  - CONGENITAL CENTRAL NERVOUS SYSTEM ANOMALY [None]
  - CONGENITAL PULMONARY HYPERTENSION [None]
  - DRUG EXPOSURE DURING PREGNANCY [None]
  - GASTROOESOPHAGEAL REFLUX DISEASE [None]
  - HYPOTHALAMO-PITUITARY DISORDER [None]
  - NERVOUS SYSTEM DISORDER [None]
  - PATENT DUCTUS ARTERIOSUS [None]
  - SPINE MALFORMATION [None]
  - VENTRICULAR SEPTAL DEFECT [None]
